FAERS Safety Report 8407374-5 (Version None)
Quarter: 2012Q2

REPORT INFORMATION
  Report Type: 
  Country: None (occurrence: None)
  Receive Date: 20120604
  Receipt Date: 20120530
  Transmission Date: 20120825
  Serious: Yes (Other)
  Sender: FDA-Public Use
  Company Number: US-ROCHE-1039108

PATIENT
  Sex: Female
  Weight: 88.53 kg

DRUGS (1)
  1. ACCUTANE [Suspect]
     Indication: ACNE CYSTIC
     Route: 065
     Dates: start: 20020801, end: 20021201

REACTIONS (6)
  - INFLAMMATORY BOWEL DISEASE [None]
  - CROHN'S DISEASE [None]
  - SUICIDAL IDEATION [None]
  - COLITIS [None]
  - IRRITABLE BOWEL SYNDROME [None]
  - ANXIETY [None]
